FAERS Safety Report 22355592 (Version 1)
Quarter: 2023Q2

REPORT INFORMATION
  Report Type: Spontaneous
  Country: JP (occurrence: JP)
  Receive Date: 20230523
  Receipt Date: 20230523
  Transmission Date: 20230722
  Serious: Yes (Other)
  Sender: FDA-Public Use
  Company Number: JP-JNJFOC-20230552787

PATIENT
  Age: 38 Year
  Sex: Male

DRUGS (3)
  1. HALOMONTH [Suspect]
     Active Substance: HALOPERIDOL DECANOATE
     Indication: Postoperative delirium
     Dosage: DOSE UNKNOWN
     Route: 030
  2. RISPERDAL [Suspect]
     Active Substance: RISPERIDONE
     Indication: Postoperative delirium
     Dosage: DOSE UNKNOWN
     Route: 048
  3. DROPERIDOL [Concomitant]
     Active Substance: DROPERIDOL
     Indication: Postoperative delirium
     Dosage: DOSE UNKNOWN
     Route: 065

REACTIONS (6)
  - Pneumonia aspiration [Unknown]
  - Respiratory failure [Unknown]
  - Parkinsonism [Unknown]
  - Dyskinesia [Unknown]
  - Dysphagia [Unknown]
  - Off label use [Unknown]
